FAERS Safety Report 9217661 (Version 1)
Quarter: 2013Q2

REPORT INFORMATION
  Report Type: Spontaneous
  Country: GB (occurrence: GB)
  Receive Date: 20130408
  Receipt Date: 20130408
  Transmission Date: 20140414
  Serious: Yes (Hospitalization)
  Sender: FDA-Public Use
  Company Number: GB-ROCHE-1210541

PATIENT
  Age: 69 Year
  Sex: Female

DRUGS (9)
  1. OSELTAMIVIR [Suspect]
     Indication: INFLUENZA
     Dosage: FOR 5 DAYS
     Route: 048
     Dates: start: 20130307
  2. OSELTAMIVIR [Suspect]
     Route: 048
     Dates: end: 20130316
  3. ADCAL-D3 [Concomitant]
  4. CHLORPHENAMINE [Concomitant]
  5. CITALOPRAM [Concomitant]
  6. LEVOTHYROXINE [Concomitant]
  7. PARACETAMOL [Concomitant]
  8. PHENYTOIN [Concomitant]
  9. RANITIDINE [Concomitant]

REACTIONS (1)
  - Epilepsy [Recovered/Resolved]
